FAERS Safety Report 23346135 (Version 1)
Quarter: 2023Q4

REPORT INFORMATION
  Report Type: Spontaneous
  Country: US (occurrence: None)
  Receive Date: 20231228
  Receipt Date: 20231228
  Transmission Date: 20240110
  Serious: Yes (Hospitalization, Other)
  Sender: FDA-Public Use
  Company Number: US-ROCHE-3482929

PATIENT
  Sex: Male
  Weight: 93.978 kg

DRUGS (2)
  1. AVASTIN [Suspect]
     Active Substance: BEVACIZUMAB
     Indication: Macular degeneration
     Route: 050
     Dates: start: 201908
  2. LISINOPRIL [Concomitant]
     Active Substance: LISINOPRIL

REACTIONS (9)
  - Pancreatitis [Recovered/Resolved]
  - Anaphylactic reaction [Recovered/Resolved]
  - Sciatica [Unknown]
  - Food allergy [Unknown]
  - Myalgia [Unknown]
  - Abdominal pain [Unknown]
  - Lipase increased [Unknown]
  - Blood glucose abnormal [Unknown]
  - Off label use [Unknown]

NARRATIVE: CASE EVENT DATE: 20190801
